FAERS Safety Report 5140064-3 (Version None)
Quarter: 2006Q4

REPORT INFORMATION
  Report Type: 
  Country: None (occurrence: None)
  Receive Date: 20061024
  Receipt Date: 20061006
  Transmission Date: 20070319
  Serious: Yes (Hospitalization)
  Sender: FDA-Public Use
  Company Number: US200610001440

PATIENT
  Age: 62 Year
  Sex: Female

DRUGS (15)
  1. HUMALOG [Suspect]
     Indication: DIABETES MELLITUS
  2. HUMALOG [Suspect]
     Indication: DIABETES MELLITUS
  3. LANTUS [Concomitant]
  4. AVAPRO [Concomitant]
  5. COREG [Concomitant]
  6. CLONIDINE [Concomitant]
  7. TIAZAC [Concomitant]
  8. PLAVIX [Concomitant]
  9. ASPIRIN [Concomitant]
  10. RENAGEL [Concomitant]
  11. LIPITOR [Concomitant]
  12. NIASPAN [Concomitant]
  13. LASIX [Concomitant]
  14. SINGULAIR [Concomitant]
  15. PROCRIT [Concomitant]

REACTIONS (7)
  - BLOOD GLUCOSE INCREASED [None]
  - CORONARY ARTERY BYPASS [None]
  - HYPERTENSION [None]
  - NASOPHARYNGITIS [None]
  - NERVOUSNESS [None]
  - PHARMACEUTICAL PRODUCT COMPLAINT [None]
  - WRONG TECHNIQUE IN DRUG USAGE PROCESS [None]
